FAERS Safety Report 9321226 (Version 1)
Quarter: 2013Q2

REPORT INFORMATION
  Report Type: Spontaneous
  Country: ES (occurrence: ES)
  Receive Date: 20130531
  Receipt Date: 20130531
  Transmission Date: 20140414
  Serious: Yes (Hospitalization)
  Sender: FDA-Public Use
  Company Number: ES-PERRIGO-13ES005605

PATIENT
  Age: 5 Year
  Sex: Male

DRUGS (1)
  1. IBUPROFEN 20 MG/ML CHILD BERRY 897 [Suspect]
     Indication: PYREXIA
     Dosage: UNK, 2 DOSES
     Route: 048

REACTIONS (3)
  - Upper gastrointestinal haemorrhage [Recovered/Resolved]
  - Haematemesis [Recovered/Resolved]
  - Gastritis erosive [Recovered/Resolved]
